FAERS Safety Report 14713521 (Version 1)
Quarter: 2018Q1

REPORT INFORMATION
  Report Type: Spontaneous
  Country: US (occurrence: US)
  Receive Date: 20180330
  Receipt Date: 20180330
  Transmission Date: 20180509
  Serious: Yes (Hospitalization)
  Sender: FDA-Public Use
  Company Number: None

PATIENT
  Age: 52 Year
  Sex: Male
  Weight: 33.16 kg

DRUGS (16)
  1. GEMCITABINE [Suspect]
     Active Substance: GEMCITABINE\GEMCITABINE HYDROCHLORIDE
     Indication: SARCOMA
     Route: 048
  2. OMEPRAZOLE. [Concomitant]
     Active Substance: OMEPRAZOLE
  3. MESALAMINE. [Concomitant]
     Active Substance: MESALAMINE
  4. MIRALAX [Concomitant]
     Active Substance: POLYETHYLENE GLYCOL 3350
  5. PERCOCET [Concomitant]
     Active Substance: ACETAMINOPHEN\OXYCODONE HYDROCHLORIDE
  6. LEE011, RIBOCICLIB [Suspect]
     Active Substance: RIBOCICLIB
     Indication: SARCOMA
     Dosage: DAY 1
     Route: 042
  7. ONDANSETRON [Concomitant]
     Active Substance: ONDANSETRON
  8. SENNA [Concomitant]
     Active Substance: SENNA LEAF\SENNOSIDES\SENNOSIDES A AND B
  9. OLAQNZAPINE [Concomitant]
  10. COMPAZINE [Concomitant]
     Active Substance: PROCHLORPERAZINE MALEATE
  11. MULTIVITAMINS [Concomitant]
     Active Substance: VITAMINS
  12. METOPROLOL. [Concomitant]
     Active Substance: METOPROLOL
  13. LIDODERM [Concomitant]
     Active Substance: LIDOCAINE
  14. LEE011, RIBOCICLIB [Suspect]
     Active Substance: RIBOCICLIB
     Dosage: DAY 8
     Route: 042
  15. MIRTAZPAINE [Concomitant]
  16. VITAMIN D3 [Concomitant]
     Active Substance: CHOLECALCIFEROL

REACTIONS (4)
  - Pleural effusion [None]
  - Brain natriuretic peptide increased [None]
  - Haemoglobin decreased [None]
  - Dyspnoea [None]

NARRATIVE: CASE EVENT DATE: 20180327
